FAERS Safety Report 8584157 (Version 2)
Quarter: 2014Q2

REPORT INFORMATION
  Report Type: Report from Study
  Country: DE (occurrence: DE)
  Receive Date: 20120529
  Receipt Date: 20140602
  Transmission Date: 20141212
  Serious: Yes (Hospitalization, Congenital Anomaly)
  Sender: FDA-Public Use
  Company Number: GXKR2012DE001807

PATIENT
  Sex: Female
  Weight: 2.75 kg

DRUGS (7)
  1. CARBAMAZEPINE [Suspect]
  2. VALPROIC ACID [Suspect]
     Route: 064
  3. TOPIRAMATE [Suspect]
     Route: 064
  4. FRISIUM [Suspect]
     Route: 064
  5. FOLIC ACID [Concomitant]
     Route: 064
  6. LAMOTRIGIN [Concomitant]
     Route: 064
  7. L-THYROXINE [Concomitant]
     Route: 064

REACTIONS (7)
  - Small for dates baby [Recovering/Resolving]
  - Ventricular septal defect [Not Recovered/Not Resolved]
  - Congenital cystic kidney disease [Not Recovered/Not Resolved]
  - Atrial septal defect [Recovered/Resolved]
  - Cardiac murmur [Unknown]
  - Congenital arterial malformation [Unknown]
  - Foetal exposure during pregnancy [Unknown]
